FAERS Safety Report 14615147 (Version 5)
Quarter: 2019Q2

REPORT INFORMATION
  Report Type: Report from Study
  Country: None (occurrence: US)
  Receive Date: 20180308
  Receipt Date: 20190620
  Transmission Date: 20190711
  Serious: Yes (Other)
  Sender: FDA-Public Use
  Company Number: US-ABBVIE-18P-163-2276390-00

PATIENT
  Age: 76 Year
  Sex: Female
  Weight: 72.19 kg

DRUGS (17)
  1. GLIPIZIDE. [Concomitant]
     Active Substance: GLIPIZIDE
     Indication: BLOOD GLUCOSE
     Dosage: 5 OR 10MG BASED ON BLOOD SUGAR, IF BLOOD IS 200 OR ABOVE
  2. SIMVASTATIN. [Concomitant]
     Active Substance: SIMVASTATIN
     Indication: BLOOD CHOLESTEROL
  3. GABAPENTIN. [Concomitant]
     Active Substance: GABAPENTIN
     Indication: PRODUCT USED FOR UNKNOWN INDICATION
     Dosage: 2-300MG IN THE AM AND 3 300 IN PM
  4. HYDROCODONE [Concomitant]
     Active Substance: HYDROCODONE
     Indication: PAIN
     Dosage: 10/225
  5. ALLOPURINOL. [Concomitant]
     Active Substance: ALLOPURINOL
     Indication: PRODUCT USED FOR UNKNOWN INDICATION
  6. VITAMIN C [Concomitant]
     Active Substance: ASCORBIC ACID
     Indication: PRODUCT USED FOR UNKNOWN INDICATION
  7. LEVOTHYROXINE. [Concomitant]
     Active Substance: LEVOTHYROXINE
     Indication: THYROID DISORDER
  8. VENCLEXTA [Suspect]
     Active Substance: VENETOCLAX
     Indication: CHRONIC LYMPHOCYTIC LEUKAEMIA
     Route: 048
     Dates: start: 2017, end: 201904
  9. FERROUS SULFATE. [Concomitant]
     Active Substance: FERROUS SULFATE
     Indication: MINERAL SUPPLEMENTATION
  10. BACLOFEN. [Concomitant]
     Active Substance: BACLOFEN
     Indication: MUSCLE SPASMS
  11. OXYBUTYNIN. [Concomitant]
     Active Substance: OXYBUTYNIN CHLORIDE
     Indication: BLADDER DISORDER
  12. HCTZ [Concomitant]
     Active Substance: HYDROCHLOROTHIAZIDE
     Indication: HYPERTENSION
  13. RANITIDINE. [Concomitant]
     Active Substance: RANITIDINE
     Indication: GASTRIC DISORDER
  14. MELOXICAN [Concomitant]
     Active Substance: MELOXICAM
     Indication: PAIN IN EXTREMITY
     Dates: start: 201802, end: 2018
  15. VENCLEXTA [Suspect]
     Active Substance: VENETOCLAX
     Dosage: ALTERNATING 100 MG WITH 200MG DAILY PER DAY.
     Route: 048
     Dates: start: 20190501
  16. PANTOPRAZOLE [Concomitant]
     Active Substance: PANTOPRAZOLE
     Indication: GASTRIC DISORDER
  17. POTASSIUM [Concomitant]
     Active Substance: POTASSIUM
     Indication: PRODUCT USED FOR UNKNOWN INDICATION
     Dosage: 10MEQ

REACTIONS (20)
  - Fall [Recovering/Resolving]
  - Sputum discoloured [Not Recovered/Not Resolved]
  - Bladder cancer [Not Recovered/Not Resolved]
  - Pain in extremity [Recovering/Resolving]
  - Vulvovaginal discomfort [Recovering/Resolving]
  - Musculoskeletal disorder [Unknown]
  - Wound infection [Unknown]
  - Musculoskeletal pain [Not Recovered/Not Resolved]
  - Eye disorder [Unknown]
  - Leukaemia [Unknown]
  - Urinary bladder polyp [Unknown]
  - Eye infection [Recovering/Resolving]
  - Scratch [Unknown]
  - Vaginal disorder [Recovering/Resolving]
  - Vulvovaginal pruritus [Unknown]
  - Malaise [Unknown]
  - Foreign body [Not Recovered/Not Resolved]
  - Jaw fracture [Unknown]
  - Weight decreased [Not Recovered/Not Resolved]
  - Haemoptysis [Not Recovered/Not Resolved]

NARRATIVE: CASE EVENT DATE: 201802
